FAERS Safety Report 4649777-0 (Version None)
Quarter: 2005Q2

REPORT INFORMATION
  Report Type: 
  Country: None (occurrence: None)
  Receive Date: 20050427
  Receipt Date: 20050412
  Transmission Date: 20051028
  Serious: Yes (Death)
  Sender: FDA-Public Use
  Company Number: A03200501114

PATIENT
  Age: 71 Year
  Sex: Female
  Weight: 108.84 kg

DRUGS (9)
  1. PLAVIX [Suspect]
     Indication: CEREBROVASCULAR ACCIDENT
     Dosage: 75 MG QD - ORAL
     Route: 048
     Dates: start: 20000101
  2. GLUCOPHAGE [Suspect]
     Indication: DIABETES MELLITUS
     Dosage: 500 MG QD  - ORAL
     Route: 048
  3. ACETYL SALICYLIC ACID USP BAT [Concomitant]
  4. ATORVASTATIN [Concomitant]
  5. QUINAPRIL HCL [Concomitant]
  6. POTASSIUM CHLORIDE [Concomitant]
  7. FUROSEMIDE [Concomitant]
  8. PROPRANOLOL [Concomitant]
  9. DOXEPIN HCL [Concomitant]

REACTIONS (2)
  - MYOCARDIAL INFARCTION [None]
  - WRIST FRACTURE [None]
